FAERS Safety Report 6048017-8 (Version None)
Quarter: 2009Q1

REPORT INFORMATION
  Report Type: 
  Country: None (occurrence: None)
  Receive Date: 20090123
  Receipt Date: 20090112
  Transmission Date: 20090719
  Serious: Yes (Hospitalization)
  Sender: FDA-Public Use
  Company Number: AU-RB-008165-09

PATIENT
  Age: 20 Year
  Sex: Female

DRUGS (10)
  1. BUPRENORPHINE HCL [Suspect]
     Route: 060
     Dates: start: 19970208, end: 19970319
  2. BUPRENORPHINE HCL [Suspect]
     Route: 060
     Dates: start: 19970204, end: 19970207
  3. BUPRENORPHINE HCL [Suspect]
     Dosage: 12 MG EVERY OTHER DAY
     Route: 060
     Dates: start: 19970320, end: 19970403
  4. BUPRENORPHINE HCL [Suspect]
     Dosage: 24 MG EVERY OTHER DAY
     Route: 060
     Dates: start: 19970404, end: 19970414
  5. DIANETTE [Concomitant]
     Indication: DRUG USE FOR UNKNOWN INDICATION
  6. PAROXETINE HCL [Concomitant]
     Indication: DRUG USE FOR UNKNOWN INDICATION
  7. VENTOLINE INHALER [Concomitant]
     Indication: DRUG USE FOR UNKNOWN INDICATION
  8. HEROIN [Concomitant]
     Indication: DRUG USE FOR UNKNOWN INDICATION
  9. ALCOHOL [Concomitant]
     Indication: DRUG USE FOR UNKNOWN INDICATION
  10. CANNABIS [Concomitant]
     Indication: DRUG USE FOR UNKNOWN INDICATION

REACTIONS (6)
  - DEHYDRATION [None]
  - ENCEPHALITIS [None]
  - MENINGITIS VIRAL [None]
  - NAUSEA [None]
  - PNEUMONIA PRIMARY ATYPICAL [None]
  - VOMITING [None]
